FAERS Safety Report 8778073 (Version 4)
Quarter: 2014Q1

REPORT INFORMATION
  Report Type: Spontaneous
  Country: US (occurrence: US)
  Receive Date: 20120912
  Receipt Date: 20140219
  Transmission Date: 20141002
  Serious: Yes (Hospitalization, Other)
  Sender: FDA-Public Use
  Company Number: US-ASTRAZENECA-2012SE60919

PATIENT
  Age: 52 Year
  Sex: Male

DRUGS (7)
  1. NEXIUM [Suspect]
     Indication: GASTROOESOPHAGEAL REFLUX DISEASE
     Route: 048
  2. TENORMIN [Suspect]
     Route: 048
  3. EFFEXOR [Suspect]
     Route: 065
  4. HCTZ [Suspect]
     Route: 048
  5. PERCOCET [Suspect]
     Dosage: 5/325 FOUR TIMES A DAY
     Route: 065
  6. CELEXA [Concomitant]
  7. REGLAN [Concomitant]

REACTIONS (30)
  - Cerebrovascular accident [Unknown]
  - Back pain [Unknown]
  - Gastrooesophageal reflux disease [Unknown]
  - Oesophagitis [Unknown]
  - Intervertebral disc disorder [Unknown]
  - Cough [Not Recovered/Not Resolved]
  - Dyspnoea [Not Recovered/Not Resolved]
  - Bronchial hyperreactivity [Unknown]
  - Wheezing [Unknown]
  - Choking sensation [Unknown]
  - Sleep disorder due to general medical condition, insomnia type [Unknown]
  - Dysphagia [Unknown]
  - Weight increased [Unknown]
  - Oesophageal hypomotility [Unknown]
  - Chest pain [Recovered/Resolved]
  - Hypertension [Unknown]
  - Musculoskeletal pain [Unknown]
  - Presyncope [Unknown]
  - Odynophagia [Unknown]
  - Osteoarthritis [Unknown]
  - Fatigue [Unknown]
  - Laryngospasm [Unknown]
  - Increased upper airway secretion [Not Recovered/Not Resolved]
  - Arthralgia [Unknown]
  - Weight decreased [Unknown]
  - Decreased appetite [Unknown]
  - Malaise [Unknown]
  - Depression [Not Recovered/Not Resolved]
  - Paraesthesia [Unknown]
  - Intentional drug misuse [Unknown]
